FAERS Safety Report 18485653 (Version 1)
Quarter: 2020Q4

REPORT INFORMATION
  Report Type: Spontaneous
  Country: US (occurrence: US)
  Receive Date: 20201110
  Receipt Date: 20201110
  Transmission Date: 20210114
  Serious: No
  Sender: FDA-Public Use
  Company Number: US-MYLANLABS-2020M1092206

PATIENT
  Age: 61 Year
  Sex: Female

DRUGS (11)
  1. FLUCONAZOLE ZYDUS [Suspect]
     Active Substance: FLUCONAZOLE
     Dosage: 1 DOSAGE FORM, QD
     Route: 048
     Dates: start: 20201002
  2. CLINDAMCYIN HYDROCHLORIDE CAPSULES USP [Suspect]
     Active Substance: CLINDAMYCIN HYDROCHLORIDE
     Indication: PRODUCT USED FOR UNKNOWN INDICATION
     Dosage: 1 DOSAGE FORM, QID
     Route: 048
     Dates: start: 202006
  3. FLUCONAZOLE ZYDUS [Suspect]
     Active Substance: FLUCONAZOLE
     Dosage: 1 DOSAGE FORM, QD
     Route: 048
     Dates: start: 20201005, end: 20201005
  4. FLUCONAZOLE ZYDUS [Suspect]
     Active Substance: FLUCONAZOLE
     Indication: ORAL CANDIDIASIS
     Dosage: UNK
     Dates: start: 202006
  5. FLUCONAZOLE ZYDUS [Suspect]
     Active Substance: FLUCONAZOLE
     Dosage: 1 DOSAGE FORM, QD
     Route: 048
     Dates: start: 20201003
  6. CLINDAMCYIN HYDROCHLORIDE CAPSULES USP [Suspect]
     Active Substance: CLINDAMYCIN HYDROCHLORIDE
     Dosage: 1 DOSAGE FORM, QID
     Route: 048
     Dates: start: 20200707, end: 20200713
  7. CLINDAMCYIN HYDROCHLORIDE CAPSULES USP [Suspect]
     Active Substance: CLINDAMYCIN HYDROCHLORIDE
     Dosage: 1 DOSAGE FORM, QID
     Route: 048
     Dates: start: 20200731, end: 20200807
  8. MEDROL [Suspect]
     Active Substance: METHYLPREDNISOLONE
     Indication: PRODUCT USED FOR UNKNOWN INDICATION
     Dosage: UNK
     Dates: start: 20200706, end: 20200711
  9. NIACIN. [Concomitant]
     Active Substance: NIACIN
     Indication: HYPERLIPIDAEMIA
     Dosage: UNK
  10. AMOXICILLIN. [Suspect]
     Active Substance: AMOXICILLIN
     Indication: PRODUCT USED FOR UNKNOWN INDICATION
     Dosage: UNK
     Dates: start: 2020
  11. IBUPROFEN. [Suspect]
     Active Substance: IBUPROFEN
     Indication: PRODUCT USED FOR UNKNOWN INDICATION
     Dosage: 4 DOSAGE FORM, QD, 4 TIMES
     Route: 048

REACTIONS (10)
  - Drug ineffective [Unknown]
  - Gastrointestinal disorder [Unknown]
  - Polydipsia [Unknown]
  - Diarrhoea [Recovered/Resolved]
  - Oral candidiasis [Not Recovered/Not Resolved]
  - Weight decreased [Not Recovered/Not Resolved]
  - Hyperhidrosis [Not Recovered/Not Resolved]
  - Dry mouth [Not Recovered/Not Resolved]
  - Toothache [Not Recovered/Not Resolved]
  - Nausea [Unknown]

NARRATIVE: CASE EVENT DATE: 202008
